FAERS Safety Report 6106225-1 (Version None)
Quarter: 2009Q1

REPORT INFORMATION
  Report Type: 
  Country: None (occurrence: None)
  Receive Date: 20090306
  Receipt Date: 20090303
  Transmission Date: 20090719
  Serious: Yes (Hospitalization)
  Sender: FDA-Public Use
  Company Number: US-ELI_LILLY_AND_COMPANY-US200903000974

PATIENT
  Sex: Female

DRUGS (9)
  1. BYETTA [Suspect]
     Indication: TYPE 2 DIABETES MELLITUS
     Dosage: 5 MG, 2/D
     Route: 058
     Dates: start: 20080401, end: 20080401
  2. BYETTA [Suspect]
     Dosage: 10 UG, 2/D
     Route: 058
     Dates: start: 20080401, end: 20090101
  3. VYTORIN [Concomitant]
     Indication: BLOOD CHOLESTEROL
  4. METOPROLOL [Concomitant]
     Indication: HYPERTENSION
     Dosage: 100 MG, DAILY (1/D)
     Route: 048
  5. ASPIRIN [Concomitant]
     Indication: PROPHYLAXIS
     Dosage: 81 MG, DAILY (1/D)
  6. LASIX [Concomitant]
     Indication: OEDEMA
     Dosage: 40 MG, 2/D
     Route: 048
  7. LASIX [Concomitant]
     Route: 042
     Dates: start: 20090101, end: 20090101
  8. GLIMEPIRIDE [Concomitant]
     Indication: TYPE 2 DIABETES MELLITUS
     Dates: start: 20080101, end: 20090101
  9. ORAL BLOOD GLUCOSE LOWERING DRUGS [Concomitant]
     Dates: start: 20080101, end: 20090101

REACTIONS (2)
  - CARDIAC FAILURE CONGESTIVE [None]
  - DRUG INEFFECTIVE [None]
